FAERS Safety Report 8320381-6 (Version None)
Quarter: 2012Q2

REPORT INFORMATION
  Report Type: 
  Country: None (occurrence: None)
  Receive Date: 20120430
  Receipt Date: 20120424
  Transmission Date: 20120825
  Serious: No
  Sender: FDA-Public Use
  Company Number: US-PFIZER INC-2012010813

PATIENT
  Sex: Female
  Weight: 59 kg

DRUGS (11)
  1. ASPIRIN [Concomitant]
     Dosage: 81 MG, 1X/DAY
  2. PREVACID [Concomitant]
     Dosage: 20 MG, 1X/DAY
  3. TIKOSYN [Suspect]
     Indication: ATRIAL FIBRILLATION
     Dosage: 0.25 MG, 2X/DAY
     Route: 048
     Dates: start: 20100405
  4. DIGOXIN [Concomitant]
     Dosage: 0.125 MG, 1X/DAY
  5. COUMADIN [Concomitant]
     Dosage: UNK
  6. ZOCOR [Concomitant]
     Dosage: 10 MG, 1X/DAY
  7. METOPROLOL [Concomitant]
     Dosage: 50 MG, 2X/DAY
  8. LISINOPRIL [Concomitant]
     Indication: HYPERTENSION
     Dosage: UNK
  9. FOLIC ACID [Concomitant]
     Dosage: 800 MG, 1X/DAY
  10. PLAVIX [Concomitant]
     Dosage: UNK
  11. SYNTHROID [Concomitant]
     Dosage: 125 UG, 1X/DAY

REACTIONS (4)
  - NAUSEA [None]
  - HAEMOGLOBIN INCREASED [None]
  - HEADACHE [None]
  - HAEMATOCRIT INCREASED [None]
